FAERS Safety Report 18501630 (Version 1)
Quarter: 2020Q4

REPORT INFORMATION
  Report Type: Spontaneous
  Country: US (occurrence: US)
  Receive Date: 20201113
  Receipt Date: 20201113
  Transmission Date: 20210114
  Serious: No
  Sender: FDA-Public Use
  Company Number: None

PATIENT
  Age: 73 Year
  Sex: Female
  Weight: 66.6 kg

DRUGS (16)
  1. LEVOTHYROXINE 100MCG [Concomitant]
     Active Substance: LEVOTHYROXINE
  2. ATIVAN 0.5MG [Concomitant]
  3. ASPIRIN EC 81MG [Concomitant]
  4. LORAZEPAM 1MG [Concomitant]
     Active Substance: LORAZEPAM
  5. CALCIUM + D [Concomitant]
     Active Substance: CALCIUM\VITAMIN D
  6. MAGNESIUM 400MG [Concomitant]
     Active Substance: MAGNESIUM
  7. PROBIOTIC ACIDOPHILUS [Concomitant]
     Active Substance: LACTOBACILLUS ACIDOPHILUS
  8. VERZENIO [Suspect]
     Active Substance: ABEMACICLIB
     Indication: BREAST CANCER FEMALE
     Route: 048
     Dates: start: 20201029
  9. RESTASIS MULTIDOSE 0.05% [Concomitant]
  10. SYNTHROID [Concomitant]
     Active Substance: LEVOTHYROXINE SODIUM
  11. MULTIVITAMIN [Concomitant]
     Active Substance: VITAMINS
  12. CLARITIN [Concomitant]
     Active Substance: LORATADINE
  13. ATORVASTATIN 10MG [Concomitant]
     Active Substance: ATORVASTATIN
  14. PROTONIX 20MG [Concomitant]
  15. FASLODEX [Concomitant]
     Active Substance: FULVESTRANT
  16. VITAMIN B COMPLEX [Concomitant]
     Active Substance: CYANOCOBALAMIN\DEXPANTHENOL\NIACINAMIDE\PYRIDOXINE HYDROCHLORIDE\RIBOFLAVIN 5^-PHOSPHATE SODIUM\THIAMINE HYDROCHLORIDE\VITAMIN B COMPLEX

REACTIONS (2)
  - Chest discomfort [None]
  - Chest pain [None]

NARRATIVE: CASE EVENT DATE: 20201113
